FAERS Safety Report 6706430-7 (Version None)
Quarter: 2010Q2

REPORT INFORMATION
  Report Type: 
  Country: None (occurrence: None)
  Receive Date: 20100503
  Receipt Date: 20100426
  Transmission Date: 20101027
  Serious: Yes (Death, Hospitalization, Other)
  Sender: FDA-Public Use
  Company Number: PHHY2010CA25907

PATIENT
  Sex: Female

DRUGS (1)
  1. EXELON [Suspect]
     Indication: DEMENTIA ALZHEIMER'S TYPE
     Dosage: PATCH 5
     Route: 062
     Dates: start: 20091201, end: 20091215

REACTIONS (3)
  - DEATH [None]
  - FALL [None]
  - HIP FRACTURE [None]
